FAERS Safety Report 12464368 (Version 1)
Quarter: 2016Q2

REPORT INFORMATION
  Report Type: Spontaneous
  Country: US (occurrence: None)
  Receive Date: 20160613
  Receipt Date: 20160613
  Transmission Date: 20160815
  Serious: Yes (Hospitalization)
  Sender: FDA-Public Use
  Company Number: None

PATIENT
  Age: 51 Year
  Sex: Female

DRUGS (1)
  1. HARVONI [Suspect]
     Active Substance: LEDIPASVIR\SOFOSBUVIR
     Indication: HEPATITIS C
     Route: 048
     Dates: start: 20160604

REACTIONS (8)
  - Cystitis [None]
  - Photopsia [None]
  - Diarrhoea [None]
  - Syncope [None]
  - Gastric infection [None]
  - Dehydration [None]
  - Kidney infection [None]
  - Nausea [None]

NARRATIVE: CASE EVENT DATE: 20160607
